APPROVED DRUG PRODUCT: ACUTECT
Active Ingredient: TECHNETIUM TC-99M APCITIDE
Strength: N/A
Dosage Form/Route: INJECTABLE;INJECTION
Application: N020887 | Product #001
Applicant: CIS BIO INTERNATIONAL SA
Approved: Sep 14, 1998 | RLD: No | RS: No | Type: DISCN